FAERS Safety Report 8580618 (Version 5)
Quarter: 2013Q1

REPORT INFORMATION
  Report Type: Spontaneous
  Country: ES (occurrence: ES)
  Receive Date: 20120525
  Receipt Date: 20130207
  Transmission Date: 20140127
  Serious: Yes (Other)
  Sender: FDA-Public Use
  Company Number: ES-ACTELION-A-CH2012-66037

PATIENT
  Age: 38 Year
  Sex: Male

DRUGS (1)
  1. TRACLEER [Suspect]
     Indication: SKIN ULCER
     Route: 048

REACTIONS (4)
  - Foetal malformation [Unknown]
  - Ultrasound scan abnormal [Unknown]
  - Pregnancy of partner [Unknown]
  - Live birth [Unknown]
